FAERS Safety Report 11628168 (Version 2)
Quarter: 2015Q4

REPORT INFORMATION
  Report Type: Spontaneous
  Country: GB (occurrence: GB)
  Receive Date: 20151014
  Receipt Date: 20151229
  Transmission Date: 20160304
  Serious: Yes (Other)
  Sender: FDA-Public Use
  Company Number: GB-ACTAVIS-2015-21660

PATIENT

DRUGS (1)
  1. LETROZOLE (UNKNOWN) [Suspect]
     Active Substance: LETROZOLE
     Indication: PRODUCT USED FOR UNKNOWN INDICATION
     Dosage: 2.5 MG, UNKNOWN
     Route: 065

REACTIONS (4)
  - Arthralgia [Recovering/Resolving]
  - Gastrointestinal disorder [Recovering/Resolving]
  - Hot flush [Recovering/Resolving]
  - Blood pressure abnormal [Recovering/Resolving]
